FAERS Safety Report 8286118-4 (Version None)
Quarter: 2012Q2

REPORT INFORMATION
  Report Type: 
  Country: None (occurrence: None)
  Receive Date: 20120416
  Receipt Date: 20120404
  Transmission Date: 20120825
  Serious: No
  Sender: FDA-Public Use
  Company Number: US-BIOGENIDEC-2012BI012168

PATIENT
  Age: 16 Year
  Sex: Male

DRUGS (1)
  1. TYSABRI [Suspect]
     Indication: MULTIPLE SCLEROSIS
     Route: 042
     Dates: start: 20120322

REACTIONS (5)
  - ABNORMAL BEHAVIOUR [None]
  - HEADACHE [None]
  - SKIN WARM [None]
  - PERIPHERAL COLDNESS [None]
  - PARAESTHESIA [None]
